FAERS Safety Report 15237904 (Version 1)
Quarter: 2018Q3

REPORT INFORMATION
  Report Type: Spontaneous
  Country: US (occurrence: US)
  Receive Date: 20180803
  Receipt Date: 20180803
  Transmission Date: 20181010
  Serious: No
  Sender: FDA-Public Use
  Company Number: US-BAYER-2018-128037

PATIENT
  Age: 86 Year
  Sex: Male

DRUGS (2)
  1. ALIQOPA [Suspect]
     Active Substance: COPANLISIB
     Dosage: UNK
     Route: 042
     Dates: start: 20180424
  2. ALIQOPA [Suspect]
     Active Substance: COPANLISIB
     Dosage: UNK
     Route: 042
     Dates: start: 20180626

REACTIONS (2)
  - International normalised ratio abnormal [Not Recovered/Not Resolved]
  - Intentional product misuse [None]

NARRATIVE: CASE EVENT DATE: 20180703
